FAERS Safety Report 13671626 (Version 3)
Quarter: 2017Q3

REPORT INFORMATION
  Report Type: Report from Study
  Country: US (occurrence: US)
  Receive Date: 20170620
  Receipt Date: 20170726
  Transmission Date: 20171127
  Serious: Yes (Other)
  Sender: FDA-Public Use
  Company Number: US-ACTELION-A-US2017-148244

PATIENT
  Age: 75 Year
  Sex: Female
  Weight: 70.3 kg

DRUGS (9)
  1. SILDENAFIL. [Concomitant]
     Active Substance: SILDENAFIL
     Dosage: 20 MG, 1-3 TIMES/DAY
  2. OXYGEN. [Concomitant]
     Active Substance: OXYGEN
     Dosage: 7 L/MIN, UNK
  3. AMLODIPINE [Concomitant]
     Active Substance: AMLODIPINE BESYLATE
  4. OPSUMIT [Suspect]
     Active Substance: MACITENTAN
     Indication: PULMONARY ARTERIAL HYPERTENSION
     Dosage: 10 MG, QD
     Route: 048
     Dates: start: 20151222
  5. ORENITRAM [Suspect]
     Active Substance: TREPROSTINIL
     Indication: PRODUCT USED FOR UNKNOWN INDICATION
     Dosage: 2.5 MG, BID
     Route: 065
     Dates: start: 20170215
  6. UPTRAVI [Suspect]
     Active Substance: SELEXIPAG
     Indication: PULMONARY ARTERIAL HYPERTENSION
     Dosage: 400 MCG, BID
     Route: 048
  7. ORENITRAM [Suspect]
     Active Substance: TREPROSTINIL
     Dosage: 1.25 MG, BID
     Route: 065
     Dates: start: 20161205
  8. ORENITRAM [Suspect]
     Active Substance: TREPROSTINIL
     Dosage: 5 MG, BID
     Route: 065
     Dates: start: 20170309
  9. UPTRAVI [Suspect]
     Active Substance: SELEXIPAG
     Dosage: 800 MCG, BID
     Route: 048

REACTIONS (23)
  - Oxygen saturation decreased [Unknown]
  - Dyspnoea exertional [Unknown]
  - Musculoskeletal pain [Unknown]
  - Arthralgia [Unknown]
  - Infection [Unknown]
  - Pulmonary pain [Unknown]
  - Arthralgia [Recovered/Resolved]
  - Dysuria [Unknown]
  - Seizure [Unknown]
  - Presyncope [Unknown]
  - Oxygen consumption increased [Unknown]
  - Pain [Unknown]
  - Myalgia [Unknown]
  - Pulmonary hypertension [Unknown]
  - Bone pain [Unknown]
  - Therapy non-responder [Unknown]
  - Back pain [Unknown]
  - Feeling abnormal [Unknown]
  - Urinary tract infection [Unknown]
  - Pain in extremity [Recovered/Resolved]
  - Dizziness [Unknown]
  - Dyspnoea [Unknown]
  - Blood pressure decreased [Unknown]

NARRATIVE: CASE EVENT DATE: 201706
